FAERS Safety Report 17070855 (Version 66)
Quarter: 2025Q4

REPORT INFORMATION
  Report Type: Report from Study
  Country: US (occurrence: US)
  Receive Date: 20191125
  Receipt Date: 20251223
  Transmission Date: 20260118
  Serious: Yes (Hospitalization, Other)
  Sender: TAKEDA
  Company Number: US-SHIRE-US201940541

PATIENT
  Age: 67 Year
  Sex: Female
  Weight: 68 kg

DRUGS (82)
  1. HUMAN IMMUNOGLOBULIN G [Suspect]
     Active Substance: HUMAN IMMUNOGLOBULIN G
     Indication: Immunodeficiency common variable
     Dosage: 52 GRAM, Q4WEEKS
  2. HUMAN IMMUNOGLOBULIN G [Suspect]
     Active Substance: HUMAN IMMUNOGLOBULIN G
     Dosage: 52 GRAM, Q4WEEKS
     Dates: start: 20190702
  3. HUMAN IMMUNOGLOBULIN G [Suspect]
     Active Substance: HUMAN IMMUNOGLOBULIN G
     Dosage: 50 GRAM, Q4WEEKS
  4. HUMAN IMMUNOGLOBULIN G [Suspect]
     Active Substance: HUMAN IMMUNOGLOBULIN G
     Dosage: 60 GRAM, Q4WEEKS
  5. HUMAN IMMUNOGLOBULIN G [Suspect]
     Active Substance: HUMAN IMMUNOGLOBULIN G
     Dosage: 60 GRAM, Q3WEEKS
  6. MEROPENEM [Suspect]
     Active Substance: MEROPENEM
     Indication: Product used for unknown indication
     Dosage: UNK
  7. BACTRIM [Suspect]
     Active Substance: SULFAMETHOXAZOLE\TRIMETHOPRIM
     Indication: Prophylaxis
     Dosage: UNK
  8. KLONOPIN [Suspect]
     Active Substance: CLONAZEPAM
     Indication: Blood pressure systolic increased
     Dosage: UNK
  9. ACETAMINOPHEN [Concomitant]
     Active Substance: ACETAMINOPHEN
     Dosage: UNK
  10. EPINEPHRINE [Concomitant]
     Active Substance: EPINEPHRINE
     Dosage: UNK
  11. LEVOTHYROXINE [Concomitant]
     Active Substance: LEVOTHYROXINE
     Dosage: UNK
  12. POSACONAZOLE [Concomitant]
     Active Substance: POSACONAZOLE
     Dosage: UNK
  13. NEILMED SINUS RINSE [Concomitant]
     Active Substance: SODIUM BICARBONATE\SODIUM CHLORIDE
     Dosage: UNK
  14. ACYCLOVIR [Concomitant]
     Active Substance: ACYCLOVIR
     Dosage: UNK
  15. FLUTICASONE PROPIONATE [Concomitant]
     Active Substance: FLUTICASONE PROPIONATE
     Dosage: UNK
  16. METHOCARBAMOL [Concomitant]
     Active Substance: METHOCARBAMOL
     Dosage: UNK
  17. CLONIDINE HYDROCHLORIDE [Concomitant]
     Active Substance: CLONIDINE HYDROCHLORIDE
     Dosage: UNK
  18. TEMOVATE [Concomitant]
     Active Substance: CLOBETASOL PROPIONATE
     Dosage: UNK
  19. LYSINE [Concomitant]
     Active Substance: LYSINE
     Dosage: UNK
  20. AMOXICILLIN [Concomitant]
     Active Substance: AMOXICILLIN
     Dosage: UNK
  21. SINGULAIR [Concomitant]
     Active Substance: MONTELUKAST SODIUM
     Dosage: UNK
  22. LEFLUNOMIDE [Concomitant]
     Active Substance: LEFLUNOMIDE
     Dosage: UNK
  23. POTASSIUM CHLORIDE [Concomitant]
     Active Substance: POTASSIUM CHLORIDE
     Dosage: UNK
  24. SODIUM CHLORIDE [Concomitant]
     Active Substance: SODIUM CHLORIDE
     Dosage: UNK
  25. BIOTIN [Concomitant]
     Active Substance: BIOTIN
     Dosage: UNK
  26. ALBUTEROL SULFATE [Concomitant]
     Active Substance: ALBUTEROL SULFATE
     Dosage: UNK
  27. BACTROBAN [Concomitant]
     Active Substance: MUPIROCIN CALCIUM
     Dosage: UNK
  28. GABAPENTIN [Concomitant]
     Active Substance: GABAPENTIN
     Dosage: UNK
  29. ASPIRIN [Concomitant]
     Active Substance: ASPIRIN
     Dosage: UNK
  30. SALEX [Concomitant]
     Active Substance: SALICYLIC ACID
     Dosage: UNK
  31. HYDROXYCHLOROQUINE SULFATE [Concomitant]
     Active Substance: HYDROXYCHLOROQUINE SULFATE
     Dosage: UNK
  32. NOXAFIL [Concomitant]
     Active Substance: POSACONAZOLE
     Dosage: UNK
  33. CALCIUM\CHOLECALCIFEROL [Concomitant]
     Active Substance: CALCIUM\CHOLECALCIFEROL
     Dosage: UNK
  34. LIDOCAINE [Concomitant]
     Active Substance: LIDOCAINE
     Dosage: UNK
  35. METOPROLOL SUCCINATE [Concomitant]
     Active Substance: METOPROLOL SUCCINATE
     Dosage: UNK
  36. SYMBICORT [Concomitant]
     Active Substance: BUDESONIDE\FORMOTEROL FUMARATE DIHYDRATE
     Dosage: UNK
  37. MELATONIN [Concomitant]
     Active Substance: MELATONIN
     Dosage: UNK
  38. DICLOFENAC SODIUM [Concomitant]
     Active Substance: DICLOFENAC SODIUM
     Dosage: UNK
  39. FLUCONAZOLE [Concomitant]
     Active Substance: FLUCONAZOLE
     Dosage: UNK
  40. HYDROCHLOROTHIAZIDE [Concomitant]
     Active Substance: HYDROCHLOROTHIAZIDE
     Dosage: UNK
  41. HYZAAR [Concomitant]
     Active Substance: HYDROCHLOROTHIAZIDE\LOSARTAN POTASSIUM
     Dosage: UNK
  42. DIPHENHYDRAMINE HYDROCHLORIDE [Concomitant]
     Active Substance: DIPHENHYDRAMINE HYDROCHLORIDE
     Dosage: UNK
  43. NORVASC [Concomitant]
     Active Substance: AMLODIPINE BESYLATE
     Dosage: UNK
  44. ZOFRAN [Concomitant]
     Active Substance: ONDANSETRON HYDROCHLORIDE
     Dosage: UNK
  45. SENNA [Concomitant]
     Active Substance: SENNOSIDES
     Dosage: UNK
  46. OMEPRAZOLE [Concomitant]
     Active Substance: OMEPRAZOLE
     Dosage: UNK
  47. TYLENOL [Concomitant]
     Active Substance: ACETAMINOPHEN
     Dosage: UNK
  48. TOBRAMYCIN [Concomitant]
     Active Substance: TOBRAMYCIN
     Dosage: UNK
  49. PREDNISONE [Concomitant]
     Active Substance: PREDNISONE
     Dosage: UNK
  50. ORENCIA [Concomitant]
     Active Substance: ABATACEPT
     Dosage: UNK
  51. DIPHENHYDRAMINE [Concomitant]
     Active Substance: DIPHENHYDRAMINE
     Dosage: UNK
  52. MUCINEX [Concomitant]
     Active Substance: GUAIFENESIN
     Dosage: UNK
  53. ZARXIO [Concomitant]
     Active Substance: FILGRASTIM-SNDZ
     Dosage: UNK
  54. FLONASE [Concomitant]
     Active Substance: FLUTICASONE PROPIONATE
     Dosage: UNK
  55. CYCLOBENZAPRINE HYDROCHLORIDE [Concomitant]
     Active Substance: CYCLOBENZAPRINE HYDROCHLORIDE
     Dosage: UNK
  56. CALCIUM\VITAMIN D [Concomitant]
     Active Substance: CALCIUM\VITAMIN D
     Dosage: UNK
  57. LORATADINE [Concomitant]
     Active Substance: LORATADINE
     Dosage: UNK
  58. NORCO [Concomitant]
     Active Substance: ACETAMINOPHEN\HYDROCODONE BITARTRATE
     Dosage: UNK
  59. LIPITOR [Concomitant]
     Active Substance: ATORVASTATIN CALCIUM
     Dosage: UNK
  60. AUGMENTIN [Concomitant]
     Active Substance: AMOXICILLIN\CLAVULANATE POTASSIUM
     Dosage: UNK
  61. TYLENOL WITH CODEINE [Concomitant]
     Active Substance: ACETAMINOPHEN\CODEINE PHOSPHATE
     Dosage: UNK
  62. CLOBETASOL PROPIONATE [Concomitant]
     Active Substance: CLOBETASOL PROPIONATE
     Dosage: UNK
  63. VITAMIN D3 [Concomitant]
     Active Substance: CHOLECALCIFEROL
     Dosage: UNK
  64. KINERET [Concomitant]
     Active Substance: ANAKINRA
     Dosage: UNK
  65. SODIUM CHLORIDE [Concomitant]
     Active Substance: SODIUM CHLORIDE
     Dosage: UNK
  66. GUAIFENESIN [Concomitant]
     Active Substance: GUAIFENESIN
     Dosage: UNK
  67. CLAVULANATE POTASSIUM [Concomitant]
     Active Substance: CLAVULANATE POTASSIUM
     Dosage: UNK
  68. AMOXICILLIN\CLAVULANATE POTASSIUM [Concomitant]
     Active Substance: AMOXICILLIN\CLAVULANATE POTASSIUM
     Dosage: UNK
  69. HEPARIN SODIUM [Concomitant]
     Active Substance: HEPARIN SODIUM
     Dosage: UNK
  70. SULFAMETHOXAZOLE AND TRIMETHOPRIM [Concomitant]
     Active Substance: SULFAMETHOXAZOLE\TRIMETHOPRIM
     Dosage: UNK
  71. HIZENTRA [Concomitant]
     Active Substance: HUMAN IMMUNOGLOBULIN G
     Dosage: UNK
  72. BUMETANIDE [Concomitant]
     Active Substance: BUMETANIDE
     Dosage: UNK
  73. LIDOCAINE AND PRILOCAINE [Concomitant]
     Active Substance: LIDOCAINE\PRILOCAINE
     Dosage: UNK
  74. HYDROCODONE BITARTRATE AND ACETAMINOPHEN [Concomitant]
     Active Substance: ACETAMINOPHEN\HYDROCODONE BITARTRATE
     Dosage: UNK
  75. HYDRALAZINE HCL [Concomitant]
     Active Substance: HYDRALAZINE HYDROCHLORIDE
     Dosage: UNK
  76. COLISTIMETHATE [Concomitant]
     Active Substance: COLISTIMETHATE SODIUM
     Dosage: UNK
  77. ACETAMINOPHEN AND CODEINE [Concomitant]
     Active Substance: ACETAMINOPHEN\CODEINE PHOSPHATE
     Dosage: UNK
  78. OXYGEN [Concomitant]
     Active Substance: OXYGEN
     Dosage: UNK
  79. CARVEDILOL [Concomitant]
     Active Substance: CARVEDILOL
     Dosage: UNK
  80. ACETAMINOPHEN\HYDROCODONE [Concomitant]
     Active Substance: ACETAMINOPHEN\HYDROCODONE
     Dosage: UNK
  81. MORPHINE SULFATE [Concomitant]
     Active Substance: MORPHINE SULFATE
     Dosage: UNK
  82. DESENEX NOS [Concomitant]
     Active Substance: UNSPECIFIED INGREDIENT
     Dosage: UNK

REACTIONS (83)
  - Paralysis [Unknown]
  - Spinal cord injury [Unknown]
  - Thoracic vertebral fracture [Unknown]
  - Spinal cord compression [Unknown]
  - Pneumonia [Unknown]
  - Pneumonia viral [Unknown]
  - Fungal sepsis [Unknown]
  - Unresponsive to stimuli [Unknown]
  - Neoplasm malignant [Unknown]
  - Rheumatoid arthritis [Unknown]
  - Achromobacter infection [Unknown]
  - Pneumonia pseudomonal [Unknown]
  - Lower respiratory tract infection bacterial [Unknown]
  - Renal impairment [Unknown]
  - Compression fracture [Unknown]
  - Pneumonia bacterial [Unknown]
  - Bronchitis [Unknown]
  - Clostridium difficile infection [Unknown]
  - Sepsis [Unknown]
  - Renal injury [Unknown]
  - Renal disorder [Unknown]
  - Pulmonary mass [Unknown]
  - Fine motor skill dysfunction [Unknown]
  - Neck pain [Unknown]
  - Arterial disorder [Unknown]
  - Drug hypersensitivity [Recovered/Resolved]
  - Wound cellulitis [Unknown]
  - Seroma [Unknown]
  - Orthosis user [Unknown]
  - Infusion related reaction [Unknown]
  - Foot deformity [Unknown]
  - Herpes zoster [Unknown]
  - Fluid retention [Unknown]
  - Laryngitis [Unknown]
  - Hypervolaemia [Unknown]
  - Fall [Unknown]
  - Illness [Unknown]
  - Head injury [Unknown]
  - Infection [Unknown]
  - Stress [Unknown]
  - Seasonal allergy [Unknown]
  - Poor venous access [Unknown]
  - Confusional state [Unknown]
  - Weight fluctuation [Unknown]
  - Post procedural complication [Unknown]
  - Depression [Unknown]
  - Respiratory tract infection [Unknown]
  - Sinusitis bacterial [Unknown]
  - Sinus disorder [Not Recovered/Not Resolved]
  - Viral infection [Unknown]
  - Product use complaint [Unknown]
  - Inappropriate schedule of product administration [Unknown]
  - Dermatitis contact [Unknown]
  - Limb discomfort [Unknown]
  - Peripheral swelling [Unknown]
  - Gastrointestinal infection [Unknown]
  - Product dose omission issue [Unknown]
  - Spinal disorder [Unknown]
  - Osteoporosis [Unknown]
  - Body height decreased [Unknown]
  - Haematoma [Unknown]
  - Sinusitis [Unknown]
  - Blood pressure systolic increased [Unknown]
  - Hypoaesthesia [Unknown]
  - Contusion [Unknown]
  - Balance disorder [Unknown]
  - Vertigo [Unknown]
  - Infusion site extravasation [Unknown]
  - Muscular weakness [Unknown]
  - Anaemia [Unknown]
  - Malaise [Unknown]
  - Cough [Unknown]
  - Dyspnoea [Unknown]
  - Arthralgia [Unknown]
  - Vomiting [Unknown]
  - Back pain [Unknown]
  - Abdominal pain [Unknown]
  - Pyrexia [Unknown]
  - Headache [Recovered/Resolved]
  - Nausea [Unknown]
  - Pain [Unknown]
  - Paranasal sinus discomfort [Unknown]
  - Fatigue [Unknown]
